FAERS Safety Report 9449004 (Version 2)
Quarter: 2013Q3

REPORT INFORMATION
  Report Type: Spontaneous
  Country: ZA (occurrence: ZA)
  Receive Date: 20130808
  Receipt Date: 20130816
  Transmission Date: 20140515
  Serious: Yes (Other)
  Sender: FDA-Public Use
  Company Number: ZA-PFIZER INC-2013230765

PATIENT
  Age: 48 Year
  Sex: Female

DRUGS (4)
  1. CHAMPIX [Suspect]
     Indication: SMOKING CESSATION THERAPY
     Dosage: 0.5 MG, 1X/DAY, FOR 3 DAYS
     Route: 048
  2. CHAMPIX [Suspect]
     Dosage: 1 DF, 2X/DAY
     Route: 048
  3. STILNOX [Concomitant]
     Indication: INSOMNIA
     Dosage: AS NEEDED
     Route: 048
  4. ADCO-DOL [Concomitant]
     Indication: HEADACHE
     Dosage: AS NEEDED
     Route: 048

REACTIONS (19)
  - Suicidal ideation [Recovered/Resolved]
  - Depression [Recovered/Resolved]
  - Personality change [Recovered/Resolved]
  - Nausea [Recovered/Resolved]
  - Insomnia [Recovered/Resolved]
  - Nightmare [Recovered/Resolved]
  - Dysgeusia [Recovered/Resolved]
  - Visual acuity reduced [Recovered/Resolved]
  - Musculoskeletal stiffness [Recovered/Resolved]
  - Neck pain [Recovered/Resolved]
  - Psychiatric symptom [Recovered/Resolved]
  - Irritability [Recovered/Resolved]
  - Decreased appetite [Recovered/Resolved]
  - Crying [Recovered/Resolved]
  - Disturbance in attention [Recovered/Resolved]
  - Abnormal behaviour [Recovered/Resolved]
  - Headache [Recovered/Resolved]
  - Diarrhoea [Recovered/Resolved]
  - Vomiting [Recovered/Resolved]
